FAERS Safety Report 8091424-2 (Version None)
Quarter: 2012Q1

REPORT INFORMATION
  Report Type: 
  Country: None (occurrence: None)
  Receive Date: 20120129
  Receipt Date: 20111129
  Transmission Date: 20120608
  Serious: Yes (Hospitalization)
  Sender: FDA-Public Use
  Company Number: US-ABBOTT-08P-163-0492926-00

PATIENT
  Sex: Female
  Weight: 48.124 kg

DRUGS (8)
  1. HUMIRA [Suspect]
     Indication: CROHN'S DISEASE
     Route: 058
     Dates: start: 20070601, end: 20080401
  2. XANAX [Concomitant]
     Indication: ANXIETY
     Route: 048
  3. VICODIN [Concomitant]
     Indication: PAIN
     Dosage: 5/500 MG
     Route: 048
  4. METHOTREXATE [Concomitant]
     Indication: CROHN'S DISEASE
     Dosage: UNKNOWN
  5. PREDNISONE TAB [Concomitant]
     Indication: CROHN'S DISEASE
     Route: 048
  6. FOLIC ACID [Concomitant]
     Indication: PRODUCT USED FOR UNKNOWN INDICATION
     Route: 048
  7. EFFEXOR [Concomitant]
     Indication: DEPRESSION
     Route: 048
  8. AZATHIOPRINE [Concomitant]
     Indication: CROHN'S DISEASE
     Route: 048

REACTIONS (3)
  - ALOPECIA [None]
  - DRUG INEFFECTIVE [None]
  - CROHN'S DISEASE [None]
